FAERS Safety Report 8473727-2 (Version None)
Quarter: 2012Q2

REPORT INFORMATION
  Report Type: 
  Country: None (occurrence: None)
  Receive Date: 20120628
  Receipt Date: 20120511
  Transmission Date: 20120825
  Serious: Yes (Other)
  Sender: FDA-Public Use
  Company Number: US-MYLANLABS-2011S1020554

PATIENT
  Age: 47 Year
  Sex: Male
  Weight: 62.6 kg

DRUGS (11)
  1. CLOZAPINE [Suspect]
  2. VITAMIN D [Concomitant]
  3. CLOZAPINE [Suspect]
     Indication: SCHIZOAFFECTIVE DISORDER
     Dates: start: 20090203
  4. CLOZAPINE [Suspect]
     Indication: ATTENTION DEFICIT/HYPERACTIVITY DISORDER
     Dates: start: 20090203
  5. CLOZAPINE [Suspect]
     Indication: BIPOLAR DISORDER
     Dates: start: 20090203
  6. DEPAKOTE [Concomitant]
     Route: 048
  7. CLOZAPINE [Suspect]
  8. CLOZAPINE [Suspect]
  9. LITHIUM CARBONATE [Concomitant]
     Route: 048
  10. COGENTIN [Concomitant]
     Route: 048
  11. MULTI-VITAMIN [Concomitant]

REACTIONS (2)
  - GRANULOCYTOPENIA [None]
  - LEUKOPENIA [None]
